FAERS Safety Report 8532325-2 (Version None)
Quarter: 2012Q3

REPORT INFORMATION
  Report Type: 
  Country: None (occurrence: None)
  Receive Date: 20120724
  Receipt Date: 20120720
  Transmission Date: 20120928
  Serious: Yes (Life-Threatening, Hospitalization, Disabling, Other)
  Sender: FDA-Public Use
  Company Number: US-BIOGENIDEC-2012BI013211

PATIENT
  Age: 49 Year
  Sex: Female
  Weight: 63 kg

DRUGS (8)
  1. MULTI-VITAMIN [Concomitant]
     Indication: ROUTINE HEALTH MAINTENANCE
     Route: 048
  2. VITAMIN D [Concomitant]
     Indication: ROUTINE HEALTH MAINTENANCE
     Route: 048
  3. CALCIUM [Concomitant]
     Indication: ROUTINE HEALTH MAINTENANCE
     Route: 048
  4. TRAZODONE HYDROCHLORIDE [Concomitant]
     Indication: SLEEP DISORDER
     Route: 048
     Dates: start: 20100506
  5. GABAPENTIN [Concomitant]
     Indication: DYSAESTHESIA
     Route: 048
     Dates: start: 20100923, end: 20120501
  6. TRAZODONE HYDROCHLORIDE [Concomitant]
     Route: 048
     Dates: start: 20100506
  7. TYSABRI [Suspect]
     Indication: MULTIPLE SCLEROSIS
     Route: 042
     Dates: start: 20070731, end: 20120416
  8. METHYLPHENIDATE [Concomitant]
     Indication: FATIGUE
     Route: 048
     Dates: start: 20090915

REACTIONS (3)
  - JUGULAR VEIN THROMBOSIS [None]
  - PROGRESSIVE MULTIFOCAL LEUKOENCEPHALOPATHY [None]
  - IMMUNE RECONSTITUTION SYNDROME [None]
